FAERS Safety Report 6306446-9 (Version None)
Quarter: 2009Q3

REPORT INFORMATION
  Report Type: 
  Country: None (occurrence: None)
  Receive Date: 20090812
  Receipt Date: 20090802
  Transmission Date: 20100115
  Serious: Yes (Death, Other)
  Sender: FDA-Public Use
  Company Number: US-BAYER-USA-2002-004594

PATIENT
  Age: 61 Year
  Sex: Male
  Weight: 104 kg

DRUGS (12)
  1. REFLUDAN [Suspect]
     Indication: HEPARIN-INDUCED THROMBOCYTOPENIA
     Dosage: 100 MG, CONTINUOUS
     Route: 042
     Dates: start: 20020928, end: 20021004
  2. REFLUDAN [Suspect]
     Dosage: 100 MG CONTINUOUS
     Route: 042
     Dates: start: 20020819, end: 20020911
  3. REFLUDAN [Suspect]
     Dosage: UNIT DOSE: 20 MG
     Route: 058
     Dates: start: 20021004, end: 20021001
  4. REFLUDAN [Suspect]
     Dosage: UNIT DOSE: 20 MG
     Route: 058
     Dates: start: 20020912, end: 20020927
  5. DOXAZOSIN [Concomitant]
     Indication: HYPERTENSION
     Dosage: UNIT DOSE: 1 MG
     Dates: start: 20020819, end: 20021024
  6. NIFEDIPINE [Concomitant]
     Indication: HYPERTENSION
     Dosage: UNIT DOSE: 30 MG
     Dates: start: 20020825, end: 20021024
  7. DIPHENHYDRAMINE HCL [Concomitant]
     Indication: HYPERSENSITIVITY
     Dosage: UNIT DOSE: 25 MG
     Dates: start: 20020914, end: 20021024
  8. SERTRALINE [Concomitant]
     Indication: DEPRESSION
     Dosage: UNIT DOSE: 150 MG
     Dates: start: 20020825, end: 20021024
  9. ACETAMINOPHEN AND HYDROCODONE BITARTRATE [Concomitant]
     Indication: PAIN
     Dosage: UNK, AS REQ'D
     Dates: start: 20020828, end: 20021024
  10. TRIAZOLAM [Concomitant]
     Indication: DRUG USE FOR UNKNOWN INDICATION
     Dosage: 0.125 MG, UNK
     Dates: start: 20020825, end: 20021024
  11. PANTOPRAZOLE SODIUM [Concomitant]
     Indication: DRUG USE FOR UNKNOWN INDICATION
     Dosage: UNIT DOSE: 10 MG
     Dates: start: 20020825, end: 20021024
  12. ENOXAPARIN SODIUM [Concomitant]
     Indication: DRUG USE FOR UNKNOWN INDICATION

REACTIONS (7)
  - DEPRESSED LEVEL OF CONSCIOUSNESS [None]
  - DRUG SPECIFIC ANTIBODY PRESENT [None]
  - HAEMORRHAGE INTRACRANIAL [None]
  - MELAENA [None]
  - MUSCLE CONTRACTIONS INVOLUNTARY [None]
  - RESPIRATORY ARREST [None]
  - THROMBOCYTOPENIA [None]
